FAERS Safety Report 8572894-X (Version None)
Quarter: 2012Q3

REPORT INFORMATION
  Report Type: 
  Country: None (occurrence: None)
  Receive Date: 20120806
  Receipt Date: 20090928
  Transmission Date: 20120928
  Serious: Yes (Death)
  Sender: FDA-Public Use
  Company Number: DE-CELGENEUS-062-21880-12060234

PATIENT
  Age: 82 Year
  Sex: Male
  Weight: 78 kg

DRUGS (7)
  1. REVLIMID [Suspect]
     Indication: MULTIPLE MYELOMA
     Route: 048
     Dates: start: 20090210
  2. BISPHOSPHONATES [Concomitant]
     Indication: ANTICOAGULANT THERAPY
     Route: 065
  3. ALIZAPRIDE [Concomitant]
     Indication: ANTIEMETIC SUPPORTIVE CARE
     Route: 065
  4. REVLIMID [Suspect]
     Route: 048
     Dates: start: 20090407, end: 20090609
  5. HEPARIN [Concomitant]
     Indication: ANTICOAGULANT THERAPY
     Route: 065
  6. RED BLOOD CELLS [Concomitant]
     Indication: TRANSFUSION
     Route: 065
  7. DEXAMETHASONE [Suspect]
     Indication: MULTIPLE MYELOMA
     Route: 065
     Dates: start: 20090210, end: 20090609

REACTIONS (10)
  - MULTIPLE MYELOMA [None]
  - NEURALGIA [None]
  - DIARRHOEA [None]
  - FATIGUE [None]
  - ANAEMIA [None]
  - CONSTIPATION [None]
  - LEUKAEMIA PLASMACYTIC [None]
  - LEUKOPENIA [None]
  - THROMBOCYTOPENIA [None]
  - BLOOD CREATININE INCREASED [None]
